FAERS Safety Report 13036274 (Version 1)
Quarter: 2016Q4

REPORT INFORMATION
  Report Type: Spontaneous
  Country: US (occurrence: US)
  Receive Date: 20161216
  Receipt Date: 20161216
  Transmission Date: 20170207
  Serious: No
  Sender: FDA-Public Use
  Company Number: US-GLAXOSMITHKLINE-US2016185590

PATIENT
  Age: 77 Year
  Sex: Male

DRUGS (1)
  1. PREVACID 24 HR [Suspect]
     Active Substance: LANSOPRAZOLE
     Indication: INFLAMMATION
     Dosage: 1 DF, QD, 1 A DAY FOR LIFE
     Dates: start: 20161208

REACTIONS (1)
  - Off label use [Unknown]
